FAERS Safety Report 6984874-6 (Version None)
Quarter: 2010Q3

REPORT INFORMATION
  Report Type: 
  Country: None (occurrence: None)
  Receive Date: 20100913
  Receipt Date: 20100907
  Transmission Date: 20110219
  Serious: Yes (Other)
  Sender: FDA-Public Use
  Company Number: TPA2010A04687

PATIENT
  Age: 22 Year
  Sex: Female
  Weight: 58.0604 kg

DRUGS (6)
  1. DEXILANT [Suspect]
     Indication: GASTROOESOPHAGEAL REFLUX DISEASE
     Dosage: 60 MG, 1 IN 1 D, PER ORAL
     Route: 048
     Dates: start: 20100101, end: 20100604
  2. REBIF [Suspect]
     Indication: MULTIPLE SCLEROSIS
     Dosage: 44 MCG, 3 IN 1 WK, SUBCUTANEOUS
     Route: 058
     Dates: start: 20100501, end: 20100614
  3. NEXIUM [Suspect]
     Indication: DYSPEPSIA
     Dosage: 40 MG, 1 IN 1 D, PER ORAL
     Route: 048
     Dates: start: 20100604, end: 20100702
  4. CARAFATE [Suspect]
     Indication: DYSPEPSIA
     Dosage: 1 GM, 3 IN 1 D
     Dates: start: 20100627, end: 20100704
  5. CIPRO [Suspect]
     Indication: URINARY TRACT INFECTION
     Dosage: 500 MG, 2 IN 1 D, PER ORAL
     Route: 048
     Dates: start: 20100624, end: 20100701
  6. SINGULAIR [Suspect]
     Indication: ASTHMA
     Dosage: 10 MG, 1 IN 1 D, PER ORAL
     Route: 048
     Dates: start: 20100625

REACTIONS (6)
  - ALANINE AMINOTRANSFERASE INCREASED [None]
  - AMENORRHOEA [None]
  - ASPARTATE AMINOTRANSFERASE INCREASED [None]
  - DRUG INEFFECTIVE [None]
  - LIVER INJURY [None]
  - URINARY TRACT INFECTION [None]
